FAERS Safety Report 20180794 (Version 2)
Quarter: 2023Q1

REPORT INFORMATION
  Report Type: Other
  Country: US (occurrence: None)
  Receive Date: 20211214
  Receipt Date: 20230214
  Transmission Date: 20230418
  Serious: No
  Sender: FDA-Public Use
  Company Number: US-ROCHE-2975973

PATIENT
  Age: 28 Year
  Sex: Male
  Weight: 174.34 kg

DRUGS (8)
  1. OCREVUS [Suspect]
     Active Substance: OCRELIZUMAB
     Indication: Multiple sclerosis
     Route: 042
     Dates: start: 20191219
  2. DULOXETINE [Concomitant]
     Active Substance: DULOXETINE
  3. CYCLOBENZAPRINE [Concomitant]
     Active Substance: CYCLOBENZAPRINE
  4. VALIUM [Concomitant]
     Active Substance: DIAZEPAM
     Route: 048
  5. SOLU-MEDROL [Concomitant]
     Active Substance: METHYLPREDNISOLONE SODIUM SUCCINATE
  6. BENADRYL [Concomitant]
     Active Substance: DIPHENHYDRAMINE HYDROCHLORIDE
  7. TYLENOL [Concomitant]
     Active Substance: ACETAMINOPHEN
  8. PREVNAR [Concomitant]
     Active Substance: PNEUMOCOCCAL 7-VALENT CONJUGATE VACCINE (DIPHTHERIA CRM197 PROTEIN)

REACTIONS (3)
  - COVID-19 [Recovered/Resolved]
  - Off label use [Unknown]
  - Influenza like illness [Unknown]

NARRATIVE: CASE EVENT DATE: 20211115
